FAERS Safety Report 16845823 (Version 5)
Quarter: 2020Q2

REPORT INFORMATION
  Report Type: Spontaneous
  Country: US (occurrence: US)
  Receive Date: 20190924
  Receipt Date: 20200527
  Transmission Date: 20200713
  Serious: Yes (Hospitalization, Other)
  Sender: FDA-Public Use
  Company Number: US-CATALYST PHARMACEUTICALS, INC-2019CAT00310

PATIENT
  Age: 72 Year
  Sex: Male
  Weight: 102.04 kg

DRUGS (18)
  1. ATENOLOL. [Concomitant]
     Active Substance: ATENOLOL
     Dosage: 25 MG, 1X/DAY
  2. ALPRAZOLAM. [Concomitant]
     Active Substance: ALPRAZOLAM
     Dosage: 25 MG, UP TO 1X/DAY
  3. FIRDAPSE [Suspect]
     Active Substance: AMIFAMPRIDINE
     Indication: MYASTHENIC SYNDROME
     Dosage: 5 MG, 3X/DAY
     Route: 048
     Dates: start: 2019, end: 2019
  4. TAMSULOSIN [Concomitant]
     Active Substance: TAMSULOSIN
     Dosage: 0.4 MG, 1X/DAY AT NIGHT
  5. TUMS [Concomitant]
     Active Substance: CALCIUM CARBONATE
     Dosage: 1 OR 2 PILLS PER DAY
  6. FIRDAPSE [Suspect]
     Active Substance: AMIFAMPRIDINE
     Dosage: 15 MG, 1X/DAY
     Route: 048
     Dates: start: 2019, end: 20190805
  7. FIRDAPSE [Suspect]
     Active Substance: AMIFAMPRIDINE
     Dosage: 15 MG, 3X/DAY
     Route: 048
     Dates: start: 2019, end: 202002
  8. CALCITRIOL. [Concomitant]
     Active Substance: CALCITRIOL
     Dosage: 1 MG, 1X/DAY
  9. CALCITRIOL. [Concomitant]
     Active Substance: CALCITRIOL
     Dosage: 0.5 MG, 1X/DAY
  10. ASPIRIN. [Concomitant]
     Active Substance: ASPIRIN
     Dosage: 325 MG, 1X/DAY
  11. VITAMN D [Concomitant]
     Dosage: 4000 MG, 1X/DAY
  12. PANTOPRAZOLE [Concomitant]
     Active Substance: PANTOPRAZOLE
     Dosage: 40 MG, 1X/DAY
  13. SODIUM BICARBONATE. [Concomitant]
     Active Substance: SODIUM BICARBONATE
     Dosage: 650 MG, 3X/DAY
  14. ATORVASTATIN [Concomitant]
     Active Substance: ATORVASTATIN
     Dosage: 40 MG, 1X/DAY
  15. SODIUM BICARBONATE. [Concomitant]
     Active Substance: SODIUM BICARBONATE
     Dosage: 1950 MG, 3X/DAY
  16. FIRDAPSE [Suspect]
     Active Substance: AMIFAMPRIDINE
     Dosage: 15 MG, 3X/DAY
     Route: 048
     Dates: start: 202002, end: 202003
  17. AMLODIPINE [Concomitant]
     Active Substance: AMLODIPINE BESYLATE
     Dosage: 10 MG, 1X/DAY
  18. FIRDAPSE [Suspect]
     Active Substance: AMIFAMPRIDINE
     Dosage: 10 MG, 3X/DAY
     Route: 048
     Dates: start: 2019, end: 2019

REACTIONS (13)
  - Fall [Unknown]
  - Drug ineffective [Recovered/Resolved]
  - Hypoaesthesia oral [Recovering/Resolving]
  - Feeling cold [Recovered/Resolved]
  - Post procedural fever [Recovered/Resolved]
  - Abdominal pain upper [Not Recovered/Not Resolved]
  - Paraesthesia [Recovering/Resolving]
  - Head injury [Unknown]
  - Flatulence [Not Recovered/Not Resolved]
  - Muscular weakness [Recovering/Resolving]
  - Haemorrhage intracranial [Unknown]
  - Back pain [Recovered/Resolved]
  - Chills [Recovered/Resolved]

NARRATIVE: CASE EVENT DATE: 2019
